FAERS Safety Report 4883975-6 (Version None)
Quarter: 2006Q1

REPORT INFORMATION
  Report Type: 
  Country: None (occurrence: None)
  Receive Date: 20060117
  Receipt Date: 20060105
  Transmission Date: 20060701
  Serious: Yes (Hospitalization)
  Sender: FDA-Public Use
  Company Number: 200610100BWH

PATIENT
  Age: 78 Year
  Sex: Male
  Weight: 66.2252 kg

DRUGS (3)
  1. SORAFENIB [Suspect]
     Indication: METASTATIC RENAL CELL CARCINOMA
     Dosage: 400 MG, BID, ORAL
     Route: 048
     Dates: start: 20051121
  2. MS CONTN [Concomitant]
  3. VICODIN [Concomitant]

REACTIONS (2)
  - ATRIAL FIBRILLATION [None]
  - LUNG NEOPLASM [None]
